FAERS Safety Report 5273152-1 (Version None)
Quarter: 2007Q1

REPORT INFORMATION
  Report Type: 
  Country: None (occurrence: None)
  Receive Date: 20070322
  Receipt Date: 20070309
  Transmission Date: 20070707
  Serious: Yes (Other)
  Sender: FDA-Public Use
  Company Number: PH-BOEHRINGER INGELHEIM PHARMACEUTICALS, INC.-2007-DE-01665GL

PATIENT
  Age: 65 Year

DRUGS (1)
  1. TELMISARTAN [Suspect]
     Indication: HYPERTENSION

REACTIONS (1)
  - HYPOKALAEMIA [None]
